FAERS Safety Report 8799084 (Version 1)
Quarter: 2012Q4

REPORT INFORMATION
  Report Type: Spontaneous
  Country: US (occurrence: None)
  Receive Date: 20120914
  Receipt Date: 20120914
  Transmission Date: 20130627
  Serious: Yes (Death, Hospitalization)
  Sender: FDA-Public Use
  Company Number: 7159114

PATIENT
  Age: 22 Year
  Sex: Male

DRUGS (1)
  1. HYDROXOCOBALAMIN [Suspect]
     Indication: CHEMICAL POISONING

REACTIONS (2)
  - Death [None]
  - Device alarm issue [None]
